FAERS Safety Report 5013710-2 (Version None)
Quarter: 2006Q2

REPORT INFORMATION
  Report Type: 
  Country: None (occurrence: None)
  Receive Date: 20060525
  Receipt Date: 20060525
  Transmission Date: 20061013
  Serious: Yes (Life-Threatening, Disabling, Other)
  Sender: FDA-Public Use
  Company Number: None

PATIENT
  Age: 42 Year
  Sex: Female
  Weight: 68.0396 kg

DRUGS (1)
  1. SEPTOCAINE [Suspect]
     Indication: TOOTH EXTRACTION
     Dosage: 1.7 X 2 (?)
     Dates: start: 20031209

REACTIONS (15)
  - BURNING SENSATION [None]
  - DRUG ADMINISTRATION ERROR [None]
  - DYSPEPSIA [None]
  - EYE PAIN [None]
  - FACIAL PAIN [None]
  - FACIAL PALSY [None]
  - HEADACHE [None]
  - MEDICATION ERROR [None]
  - OEDEMA MOUTH [None]
  - ORAL DISCOMFORT [None]
  - ORAL PAIN [None]
  - PAIN [None]
  - PHOTOPHOBIA [None]
  - PROCEDURAL COMPLICATION [None]
  - TRISMUS [None]
